FAERS Safety Report 7813051-1 (Version None)
Quarter: 2011Q4

REPORT INFORMATION
  Report Type: 
  Country: None (occurrence: None)
  Receive Date: 20111013
  Receipt Date: 20111003
  Transmission Date: 20120403
  Serious: Yes (Congenital Anomaly)
  Sender: FDA-Public Use
  Company Number: PHHY2011FR88043

PATIENT
  Sex: Male
  Weight: 4 kg

DRUGS (5)
  1. AMINOPHYLLINE [Concomitant]
     Dosage: 300 MG, QD
     Dates: start: 20100820, end: 20110511
  2. SINGULAIR [Concomitant]
     Dosage: UNK
     Dates: start: 20100820, end: 20110511
  3. FORADIL [Suspect]
     Dosage: 300 MG, QD
     Dates: start: 20100820, end: 20110511
  4. XYZAL [Concomitant]
     Dosage: 5 MG, QD
     Dates: start: 20100820, end: 20110511
  5. BRICANYL [Concomitant]
     Dosage: UNK
     Dates: start: 20100820, end: 20110511

REACTIONS (3)
  - EXOPHTHALMOS CONGENITAL [None]
  - MATERNAL EXPOSURE DURING PREGNANCY [None]
  - CRANIOSYNOSTOSIS [None]
